FAERS Safety Report 13439963 (Version 12)
Quarter: 2020Q1

REPORT INFORMATION
  Report Type: Report from Study
  Country: FR (occurrence: FR)
  Receive Date: 20170413
  Receipt Date: 20200317
  Transmission Date: 20200409
  Serious: Yes (Hospitalization)
  Sender: FDA-Public Use
  Company Number: FR-ROCHE-1350844

PATIENT
  Age: 50 Year
  Sex: Male
  Weight: 54 kg

DRUGS (103)
  1. METHYLPREDNISOLONE. [Concomitant]
     Active Substance: METHYLPREDNISOLONE
     Indication: PREMEDICATION
     Route: 065
     Dates: start: 20120620, end: 20120620
  2. METHYLPREDNISOLONE. [Concomitant]
     Active Substance: METHYLPREDNISOLONE
     Route: 065
     Dates: start: 20121221, end: 20121221
  3. METHYLPREDNISOLONE. [Concomitant]
     Active Substance: METHYLPREDNISOLONE
     Route: 065
     Dates: start: 20120314, end: 20120316
  4. METHYLPREDNISOLONE. [Concomitant]
     Active Substance: METHYLPREDNISOLONE
     Route: 065
     Dates: start: 20140507, end: 20140507
  5. METHYLPREDNISOLONE. [Concomitant]
     Active Substance: METHYLPREDNISOLONE
     Route: 065
     Dates: start: 20150923, end: 20150923
  6. METHYLPREDNISOLONE. [Concomitant]
     Active Substance: METHYLPREDNISOLONE
     Route: 065
     Dates: start: 20141007, end: 20141007
  7. POLARAMINE [Concomitant]
     Active Substance: DEXCHLORPHENIRAMINE MALEATE
     Route: 065
     Dates: start: 20140423, end: 20140423
  8. POLARAMINE [Concomitant]
     Active Substance: DEXCHLORPHENIRAMINE MALEATE
     Route: 065
     Dates: start: 20170124, end: 20170124
  9. FRAGMINE [Concomitant]
     Active Substance: DALTEPARIN SODIUM
     Route: 065
     Dates: start: 20121213, end: 20121213
  10. UVEDOSE [Concomitant]
     Active Substance: CHOLECALCIFEROL
     Route: 065
     Dates: start: 20150528, end: 20150623
  11. DIFFU K [Concomitant]
     Active Substance: POTASSIUM CHLORIDE
     Indication: MULTIPLE SCLEROSIS
     Route: 065
     Dates: start: 20120516, end: 20120519
  12. METHYLPREDNISOLONE. [Concomitant]
     Active Substance: METHYLPREDNISOLONE
     Route: 065
     Dates: start: 20110920, end: 20110925
  13. METHYLPREDNISOLONE. [Concomitant]
     Active Substance: METHYLPREDNISOLONE
     Route: 065
     Dates: start: 20150909, end: 20150909
  14. PERFALGAN [Concomitant]
     Active Substance: ACETAMINOPHEN
     Route: 065
     Dates: start: 20150909, end: 20150909
  15. POLARAMINE [Concomitant]
     Active Substance: DEXCHLORPHENIRAMINE MALEATE
     Route: 065
     Dates: start: 20141021, end: 20141021
  16. POLARAMINE [Concomitant]
     Active Substance: DEXCHLORPHENIRAMINE MALEATE
     Route: 065
     Dates: start: 20150923, end: 20150923
  17. XATRAL [Concomitant]
     Active Substance: ALFUZOSIN
     Dosage: XATRAL 10 LP
     Route: 065
     Dates: start: 20150924, end: 20161219
  18. DRIPTANE [Concomitant]
     Active Substance: OXYBUTYNIN
     Indication: URINARY INCONTINENCE
     Route: 065
     Dates: start: 20121207, end: 20121209
  19. DRIPTANE [Concomitant]
     Active Substance: OXYBUTYNIN
     Route: 065
     Dates: start: 20121213, end: 20121214
  20. UVEDOSE [Concomitant]
     Active Substance: CHOLECALCIFEROL
     Indication: VITAMIN D DEFICIENCY
     Route: 065
     Dates: start: 20131106, end: 20150527
  21. VESICARE [Concomitant]
     Active Substance: SOLIFENACIN SUCCINATE
     Indication: URINARY RETENTION
     Route: 065
     Dates: start: 20120713, end: 20160518
  22. OCRELIZUMAB. [Suspect]
     Active Substance: OCRELIZUMAB
     Dosage: SUBSEQUENT DOSES RECEIVED ON 12/JUL/2017, 27/DEC/2017, 13/JUN/2018 AND 15/MAY/2019
     Route: 042
     Dates: start: 20170124
  23. METHYLPREDNISOLONE. [Concomitant]
     Active Substance: METHYLPREDNISOLONE
     Indication: MULTIPLE SCLEROSIS
     Route: 065
     Dates: start: 20120704, end: 20120704
  24. METHYLPREDNISOLONE. [Concomitant]
     Active Substance: METHYLPREDNISOLONE
     Indication: MULTIPLE SCLEROSIS
     Route: 065
     Dates: start: 20121205, end: 20121205
  25. METHYLPREDNISOLONE. [Concomitant]
     Active Substance: METHYLPREDNISOLONE
     Route: 065
     Dates: start: 20130605, end: 20130605
  26. METHYLPREDNISOLONE. [Concomitant]
     Active Substance: METHYLPREDNISOLONE
     Route: 065
     Dates: start: 20131106, end: 20131106
  27. METHYLPREDNISOLONE. [Concomitant]
     Active Substance: METHYLPREDNISOLONE
     Route: 065
     Dates: start: 20120516, end: 20120519
  28. METHYLPREDNISOLONE. [Concomitant]
     Active Substance: METHYLPREDNISOLONE
     Route: 065
     Dates: start: 20110920, end: 20110925
  29. PERFALGAN [Concomitant]
     Active Substance: ACETAMINOPHEN
     Route: 065
     Dates: start: 20140423, end: 20140423
  30. PERFALGAN [Concomitant]
     Active Substance: ACETAMINOPHEN
     Route: 065
     Dates: start: 20141021, end: 20141021
  31. POLARAMINE [Concomitant]
     Active Substance: DEXCHLORPHENIRAMINE MALEATE
     Route: 065
     Dates: start: 20160224, end: 20160224
  32. STROMECTOL [Concomitant]
     Active Substance: IVERMECTIN
     Route: 065
     Dates: start: 20140215, end: 20140215
  33. ATORVASTATIN [Concomitant]
     Active Substance: ATORVASTATIN
     Route: 065
     Dates: start: 20160224
  34. EDUCTYL [Concomitant]
     Active Substance: POTASSIUM BITARTRATE\SODIUM BICARBONATE
     Route: 065
     Dates: start: 20170712
  35. PARACETAMOL [Concomitant]
     Active Substance: ACETAMINOPHEN
     Indication: PREMEDICATION
     Dosage: SUBSEQUENT DOSES RECEIVED ON 15/MAY/2019
     Route: 065
     Dates: start: 20120620, end: 20120620
  36. PARACETAMOL [Concomitant]
     Active Substance: ACETAMINOPHEN
     Indication: PYREXIA
     Route: 065
     Dates: start: 20120704, end: 20120704
  37. PERFALGAN [Concomitant]
     Active Substance: ACETAMINOPHEN
     Route: 065
     Dates: start: 20140507, end: 20140507
  38. POLARAMINE [Concomitant]
     Active Substance: DEXCHLORPHENIRAMINE MALEATE
     Route: 065
     Dates: start: 20121221, end: 20121221
  39. POLARAMINE [Concomitant]
     Active Substance: DEXCHLORPHENIRAMINE MALEATE
     Route: 065
     Dates: start: 20130605, end: 20130605
  40. POLARAMINE [Concomitant]
     Active Substance: DEXCHLORPHENIRAMINE MALEATE
     Route: 065
     Dates: start: 20131106, end: 20131106
  41. POLARAMINE [Concomitant]
     Active Substance: DEXCHLORPHENIRAMINE MALEATE
     Route: 065
     Dates: start: 20150325, end: 20150325
  42. FAMPYRA [Concomitant]
     Active Substance: DALFAMPRIDINE
     Indication: GAIT DISTURBANCE
     Route: 065
     Dates: start: 20130820, end: 20131106
  43. HEPT-A-MYL [Concomitant]
     Active Substance: HEPTAMINOL HYDROCHLORIDE
     Indication: ORTHOSTATIC HYPOTENSION
     Route: 065
     Dates: start: 20131106
  44. TOVIAZ [Concomitant]
     Active Substance: FESOTERODINE FUMARATE
     Indication: BLADDER DISORDER
     Dosage: RESTARTED ON 03/MAR/2018
     Route: 065
     Dates: start: 20160127, end: 20161219
  45. ISPAGHUL [Concomitant]
     Indication: CONSTIPATION
     Dosage: 2 BAG
     Route: 065
     Dates: start: 20170712
  46. METHYLPREDNISOLONE. [Concomitant]
     Active Substance: METHYLPREDNISOLONE
     Route: 065
     Dates: start: 20130522, end: 20130522
  47. METHYLPREDNISOLONE. [Concomitant]
     Active Substance: METHYLPREDNISOLONE
     Route: 065
     Dates: start: 20150408, end: 20150408
  48. METHYLPREDNISOLONE. [Concomitant]
     Active Substance: METHYLPREDNISOLONE
     Dosage: SAME DOSE ON  27/DEC/2017, 13/JUN/2018
     Route: 065
     Dates: start: 20170712, end: 20170712
  49. PARACETAMOL [Concomitant]
     Active Substance: ACETAMINOPHEN
     Route: 065
     Dates: start: 20150325, end: 20150325
  50. PARACETAMOL [Concomitant]
     Active Substance: ACETAMINOPHEN
     Route: 065
     Dates: start: 20150923, end: 20150923
  51. PARACETAMOL [Concomitant]
     Active Substance: ACETAMINOPHEN
     Dosage: SAME DOSE ON  27/DEC/2017
     Route: 065
     Dates: start: 20170712, end: 20170712
  52. PERFALGAN [Concomitant]
     Active Substance: ACETAMINOPHEN
     Route: 065
     Dates: start: 20130522, end: 20130522
  53. POLARAMINE [Concomitant]
     Active Substance: DEXCHLORPHENIRAMINE MALEATE
     Route: 065
     Dates: start: 20131120, end: 20131120
  54. POLARAMINE [Concomitant]
     Active Substance: DEXCHLORPHENIRAMINE MALEATE
     Route: 065
     Dates: start: 20150909, end: 20150909
  55. POLARAMINE [Concomitant]
     Active Substance: DEXCHLORPHENIRAMINE MALEATE
     Route: 065
     Dates: start: 20160810, end: 20160810
  56. POLARAMINE [Concomitant]
     Active Substance: DEXCHLORPHENIRAMINE MALEATE
     Dosage: SAME DOSE ON  27/DEC/2017, 13/JUN/2018
     Route: 065
     Dates: start: 20170712, end: 20170712
  57. TAHOR [Concomitant]
     Active Substance: ATORVASTATIN CALCIUM
     Route: 065
     Dates: start: 20171230
  58. FRAGMINE [Concomitant]
     Active Substance: DALTEPARIN SODIUM
     Indication: VENOUS THROMBOSIS
     Route: 065
     Dates: start: 20120512, end: 20120518
  59. IBUPROFEN. [Concomitant]
     Active Substance: IBUPROFEN
     Indication: VIRAL INFECTION
     Route: 065
     Dates: start: 20131208, end: 20131208
  60. ULCAR [SUCRALFATE] [Concomitant]
     Indication: MULTIPLE SCLEROSIS
     Route: 065
     Dates: start: 20120516, end: 20120519
  61. GUTRON [Concomitant]
     Active Substance: MIDODRINE
     Indication: ORTHOSTATIC HYPOTENSION
     Route: 065
     Dates: start: 20180517
  62. METHYLPREDNISOLONE. [Concomitant]
     Active Substance: METHYLPREDNISOLONE
     Route: 065
     Dates: start: 20140204, end: 20140206
  63. METHYLPREDNISOLONE. [Concomitant]
     Active Substance: METHYLPREDNISOLONE
     Route: 065
     Dates: start: 20150325, end: 20150325
  64. METHYLPREDNISOLONE. [Concomitant]
     Active Substance: METHYLPREDNISOLONE
     Route: 065
     Dates: start: 20141021, end: 20141021
  65. PARACETAMOL [Concomitant]
     Active Substance: ACETAMINOPHEN
     Route: 065
     Dates: start: 20121207, end: 20121207
  66. POLARAMINE [Concomitant]
     Active Substance: DEXCHLORPHENIRAMINE MALEATE
     Indication: PREMEDICATION
     Dosage: SUBSEQUENT DOSES RECEIVED ON 15/MAY/2019
     Route: 065
     Dates: start: 20120620, end: 20120620
  67. POLARAMINE [Concomitant]
     Active Substance: DEXCHLORPHENIRAMINE MALEATE
     Route: 065
     Dates: start: 20121205, end: 20121205
  68. POLARAMINE [Concomitant]
     Active Substance: DEXCHLORPHENIRAMINE MALEATE
     Route: 065
     Dates: start: 20130522, end: 20130522
  69. POLARAMINE [Concomitant]
     Active Substance: DEXCHLORPHENIRAMINE MALEATE
     Route: 065
     Dates: start: 20141007, end: 20141007
  70. XATRAL [Concomitant]
     Active Substance: ALFUZOSIN
     Route: 065
     Dates: start: 20140128, end: 20150528
  71. TAHOR [Concomitant]
     Active Substance: ATORVASTATIN CALCIUM
     Indication: HYPERCHOLESTEROLAEMIA
     Dosage: 1 TABLET EVENINGS
     Route: 065
     Dates: start: 2008, end: 20151210
  72. LYRICA [Concomitant]
     Active Substance: PREGABALIN
     Indication: NEURALGIA
     Route: 065
     Dates: start: 20151002
  73. UROREC [Concomitant]
     Active Substance: SILODOSIN
     Indication: BLADDER DISORDER
     Route: 065
     Dates: start: 20161219
  74. OCRELIZUMAB. [Suspect]
     Active Substance: OCRELIZUMAB
     Indication: PRIMARY PROGRESSIVE MULTIPLE SCLEROSIS
     Dosage: ON DAY 1 AND 15 OF FIRST 24 WEEK CYCLES AND THEN SINGLE INFUSION OF 600 MG FOR EACH SUBSEQUENT CYCLE
     Route: 042
     Dates: start: 20160224
  75. METHYLPREDNISOLONE. [Concomitant]
     Active Substance: METHYLPREDNISOLONE
     Route: 065
     Dates: start: 20131120, end: 20131120
  76. METHYLPREDNISOLONE. [Concomitant]
     Active Substance: METHYLPREDNISOLONE
     Route: 065
     Dates: start: 20140423, end: 20140423
  77. METHYLPREDNISOLONE. [Concomitant]
     Active Substance: METHYLPREDNISOLONE
     Route: 065
     Dates: start: 20160224, end: 20160224
  78. PERFALGAN [Concomitant]
     Active Substance: ACETAMINOPHEN
     Indication: PREMEDICATION
     Dosage: SUBSEQUENT DOSES RECEIVED ON 15/MAY/2019
     Route: 065
     Dates: start: 20121205, end: 20121205
  79. PERFALGAN [Concomitant]
     Active Substance: ACETAMINOPHEN
     Route: 065
     Dates: start: 20131106, end: 20131106
  80. PERFALGAN [Concomitant]
     Active Substance: ACETAMINOPHEN
     Route: 065
     Dates: start: 20131120, end: 20131120
  81. PERFALGAN [Concomitant]
     Active Substance: ACETAMINOPHEN
     Route: 065
     Dates: start: 20160224, end: 20160224
  82. POLARAMINE [Concomitant]
     Active Substance: DEXCHLORPHENIRAMINE MALEATE
     Route: 065
     Dates: start: 20150408, end: 20150408
  83. STROMECTOL [Concomitant]
     Active Substance: IVERMECTIN
     Indication: ACARODERMATITIS
     Route: 065
     Dates: start: 20140201, end: 20140201
  84. CORTANCYL [Concomitant]
     Active Substance: PREDNISONE
     Indication: BACK PAIN
     Route: 065
     Dates: start: 20140611, end: 20140617
  85. COMBODART [Concomitant]
     Active Substance: DUTASTERIDE\TAMSULOSIN
     Indication: INCONTINENCE
     Route: 065
     Dates: start: 20150528, end: 20150923
  86. OCRELIZUMAB. [Suspect]
     Active Substance: OCRELIZUMAB
     Indication: PRIMARY PROGRESSIVE MULTIPLE SCLEROSIS
     Dosage: DUAL INFUSIONS SEPARATED BY 14 DAYS IN EACH TREATMENT CYCLE OF DOUBLE BLIND TREATMENT PERIOD, PER PR
     Route: 042
     Dates: start: 20120620, end: 20160223
  87. METHYLPREDNISOLONE. [Concomitant]
     Active Substance: METHYLPREDNISOLONE
     Route: 065
     Dates: start: 20120516, end: 20120519
  88. METHYLPREDNISOLONE. [Concomitant]
     Active Substance: METHYLPREDNISOLONE
     Route: 065
     Dates: start: 20160810, end: 20160810
  89. METHYLPREDNISOLONE. [Concomitant]
     Active Substance: METHYLPREDNISOLONE
     Route: 065
     Dates: start: 20170124, end: 20170124
  90. METHYLPREDNISOLONE. [Concomitant]
     Active Substance: METHYLPREDNISOLONE
     Route: 065
     Dates: start: 20140204, end: 20140206
  91. METHYLPREDNISOLONE. [Concomitant]
     Active Substance: METHYLPREDNISOLONE
     Route: 065
     Dates: start: 20120314, end: 20120316
  92. METHYLPREDNISOLONE. [Concomitant]
     Active Substance: METHYLPREDNISOLONE
     Dosage: SUBSEQUENT DOSES RECEIVED ON 15/MAY/2019
     Route: 065
     Dates: start: 20180613, end: 20180613
  93. PARACETAMOL [Concomitant]
     Active Substance: ACETAMINOPHEN
     Route: 065
     Dates: start: 20160810, end: 20160810
  94. PARACETAMOL [Concomitant]
     Active Substance: ACETAMINOPHEN
     Route: 065
     Dates: start: 20170124, end: 20170124
  95. PERFALGAN [Concomitant]
     Active Substance: ACETAMINOPHEN
     Route: 065
     Dates: start: 20121221, end: 20121221
  96. PERFALGAN [Concomitant]
     Active Substance: ACETAMINOPHEN
     Route: 065
     Dates: start: 20130605, end: 20130605
  97. PERFALGAN [Concomitant]
     Active Substance: ACETAMINOPHEN
     Route: 065
     Dates: start: 20150408, end: 20150408
  98. PERFALGAN [Concomitant]
     Active Substance: ACETAMINOPHEN
     Route: 065
     Dates: start: 20141007, end: 20141007
  99. POLARAMINE [Concomitant]
     Active Substance: DEXCHLORPHENIRAMINE MALEATE
     Route: 065
     Dates: start: 20120704, end: 20120704
  100. POLARAMINE [Concomitant]
     Active Substance: DEXCHLORPHENIRAMINE MALEATE
     Route: 065
     Dates: start: 20140527, end: 20140527
  101. POLARAMINE [Concomitant]
     Active Substance: DEXCHLORPHENIRAMINE MALEATE
     Route: 065
     Dates: start: 20140507, end: 20140507
  102. XATRAL [Concomitant]
     Active Substance: ALFUZOSIN
     Indication: URINARY RETENTION
     Route: 065
     Dates: start: 20120625, end: 20131202
  103. UVEDOSE [Concomitant]
     Active Substance: CHOLECALCIFEROL
     Route: 065
     Dates: start: 20150624, end: 20161206

REACTIONS (1)
  - Pruritus allergic [Unknown]

NARRATIVE: CASE EVENT DATE: 20121105
